FAERS Safety Report 10752158 (Version 2)
Quarter: 2015Q2

REPORT INFORMATION
  Report Type: Spontaneous
  Country: IT (occurrence: None)
  Receive Date: 20150128
  Receipt Date: 20150515
  Transmission Date: 20150821
  Serious: Yes (Other)
  Sender: FDA-Public Use
  Company Number: KAD201408-001036

PATIENT
  Age: 68 Year
  Sex: Male

DRUGS (14)
  1. OMEPRAZOLE. [Concomitant]
     Active Substance: OMEPRAZOLE
  2. FUROSEMIDE. [Concomitant]
     Active Substance: FUROSEMIDE
  3. DARBEPOETIN ALPHA [Concomitant]
  4. PEGYLATED INTERFERON ALFA 2A [Suspect]
     Active Substance: PEGINTERFERON ALFA-2A
     Indication: CHRONIC HEPATITIS C
     Dates: start: 200911, end: 201002
  5. LACTULOSE. [Concomitant]
     Active Substance: LACTULOSE
  6. CARDIOASPIRIN [Concomitant]
     Active Substance: ASPIRIN
  7. POTASSIUM CANREONATE [Concomitant]
  8. BISOPROLOL [Concomitant]
     Active Substance: BISOPROLOL
  9. RIBAVIRIN (RIBAVIRIN) [Suspect]
     Active Substance: RIBAVIRIN
     Indication: CHRONIC HEPATITIS C
     Dates: start: 200911, end: 201002
  10. ERYTHROPOETIN [Concomitant]
     Active Substance: ERYTHROPOIETIN
  11. FOLLIC ACID (VITAMIN B) [Concomitant]
  12. CALCITAROL (1, 25-DIHYDROXYVITAMIN D3) [Concomitant]
  13. IRON SULPHATE (FERROUS SULFATE) [Concomitant]
  14. REPAGLINIDE. [Concomitant]
     Active Substance: REPAGLINIDE

REACTIONS (14)
  - Renal tubular necrosis [None]
  - Nephropathy toxic [None]
  - Nephritic syndrome [None]
  - Anaemia [None]
  - Oedema [None]
  - Pleural effusion [None]
  - Ascites [None]
  - Acute kidney injury [None]
  - Blood parathyroid hormone increased [None]
  - Pneumonia [None]
  - Peritoneal dialysis [None]
  - Hepatic encephalopathy [None]
  - Varices oesophageal [None]
  - Haemorrhoids [None]
